FAERS Safety Report 6175119-8 (Version None)
Quarter: 2009Q2

REPORT INFORMATION
  Report Type: 
  Country: None (occurrence: None)
  Receive Date: 20090430
  Receipt Date: 20090120
  Transmission Date: 20091009
  Serious: No
  Sender: FDA-Public Use
  Company Number: US-ASTRAZENECA-2008UW28677

PATIENT
  Age: 53 Year
  Sex: Female
  Weight: 90.7 kg

DRUGS (6)
  1. NEXIUM [Suspect]
     Indication: REFLUX OESOPHAGITIS
     Route: 048
     Dates: start: 20020101
  2. INDERAL [Concomitant]
  3. SYNTHROID [Concomitant]
  4. TRICOR [Concomitant]
  5. EFFEXOR [Concomitant]
  6. NEURONTIN [Concomitant]

REACTIONS (2)
  - GASTRIC POLYPS [None]
  - POLYP [None]
